FAERS Safety Report 5835625-X (Version None)
Quarter: 2008Q3

REPORT INFORMATION
  Report Type: 
  Country: None (occurrence: None)
  Receive Date: 20080806
  Receipt Date: 20080805
  Transmission Date: 20090109
  Serious: Yes (Hospitalization)
  Sender: FDA-Public Use
  Company Number: PHHO1999IT05454

PATIENT
  Sex: Male
  Weight: 75 kg

DRUGS (8)
  1. AZATHIOPRINE COMP-AZA+ [Suspect]
     Dosage: UNK
     Route: 048
     Dates: start: 19991017, end: 19991103
  2. AZATHIOPRINE COMP-AZA+ [Suspect]
     Dosage: CODE NOT BROKEN
     Dates: start: 19991113
  3. AZATHIOPRINE COMP-AZA+ [Suspect]
     Dosage: CODE NOT BROKEN
     Dates: start: 19991113
  4. NEORAL [Suspect]
     Route: 048
     Dates: start: 19991016, end: 19991103
  5. NEORAL [Suspect]
     Dates: start: 19991105
  6. DELTA-CORTEF [Concomitant]
  7. BACTRIM [Concomitant]
  8. ASPIRIN [Concomitant]

REACTIONS (3)
  - ANURIA [None]
  - BLOOD CREATININE INCREASED [None]
  - OLIGURIA [None]
